FAERS Safety Report 9401415 (Version 1)
Quarter: 2013Q3

REPORT INFORMATION
  Report Type: Report from Study
  Country: US (occurrence: US)
  Receive Date: 20130715
  Receipt Date: 20130715
  Transmission Date: 20140515
  Serious: Yes (Death, Other)
  Sender: FDA-Public Use
  Company Number: US-BAXTER-2013BAX026427

PATIENT
  Age: 87 Year
  Sex: Male

DRUGS (4)
  1. FEIBA NF [Suspect]
     Indication: SUBDURAL HAEMATOMA
     Dosage: 500 U - GIVEN TWICE (TOTAL: 1000 U)
     Route: 065
  2. FEIBA NF [Suspect]
     Indication: OFF LABEL USE
  3. VITAMIN K [Suspect]
     Indication: SUBDURAL HAEMATOMA
     Route: 042
  4. WARFARIN [Concomitant]
     Indication: PRODUCT USED FOR UNKNOWN INDICATION
     Route: 065

REACTIONS (5)
  - Respiratory failure [Fatal]
  - Drug ineffective [Not Recovered/Not Resolved]
  - Brain oedema [Not Recovered/Not Resolved]
  - Convulsion [Not Recovered/Not Resolved]
  - Secretion discharge [Not Recovered/Not Resolved]
